FAERS Safety Report 8231366-2 (Version None)
Quarter: 2012Q1

REPORT INFORMATION
  Report Type: 
  Country: None (occurrence: None)
  Receive Date: 20120323
  Receipt Date: 20120314
  Transmission Date: 20120608
  Serious: Yes (Hospitalization, Other)
  Sender: FDA-Public Use
  Company Number: JP-SANOFI-AVENTIS-2012SA004516

PATIENT
  Age: 74 Year
  Sex: Male
  Weight: 47.6 kg

DRUGS (3)
  1. THERAPEUTIC RADIOPHARMACEUTICALS [Concomitant]
  2. CISPLATIN [Suspect]
     Indication: NON-SMALL CELL LUNG CANCER
     Route: 065
     Dates: start: 20111018
  3. TAXOTERE [Suspect]
     Indication: NON-SMALL CELL LUNG CANCER
     Route: 042
     Dates: start: 20111018

REACTIONS (9)
  - RASH [None]
  - THROMBOTIC MICROANGIOPATHY [None]
  - OEDEMA PERIPHERAL [None]
  - DELIRIUM [None]
  - OLIGURIA [None]
  - PURPURA [None]
  - NEPHROTIC SYNDROME [None]
  - HYPERTENSION [None]
  - PYREXIA [None]
